FAERS Safety Report 9322042 (Version 1)
Quarter: 2013Q2

REPORT INFORMATION
  Report Type: Spontaneous
  Country: US (occurrence: None)
  Receive Date: 20130530
  Receipt Date: 20130530
  Transmission Date: 20140414
  Serious: Yes (Hospitalization)
  Sender: FDA-Public Use
  Company Number: None

PATIENT
  Age: 78 Year
  Sex: Male
  Weight: 69.85 kg

DRUGS (8)
  1. AEZS-108 (AN-152) ZOPTARELIN DOXORUBICIN [Suspect]
     Indication: PROSTATE CANCER METASTATIC
     Dosage: 390 MG ; 20 MG/M2 Q 3 WEEKS ; INTRAVENOUS
     Route: 042
     Dates: start: 20130507
  2. NEURONTIN [Concomitant]
  3. TRAMADOL [Concomitant]
  4. AMBIEN [Concomitant]
  5. ALLEGRA [Concomitant]
  6. COMPAZINE [Concomitant]
  7. FLEXERIL [Concomitant]
  8. THYROXINE [Concomitant]

REACTIONS (5)
  - Fatigue [None]
  - Urine flow decreased [None]
  - Dysuria [None]
  - Sepsis [None]
  - Febrile neutropenia [None]
